FAERS Safety Report 9825239 (Version 1)
Quarter: 2013Q4

REPORT INFORMATION
  Report Type: Spontaneous
  Country: US (occurrence: None)
  Receive Date: 20131028
  Receipt Date: 20131028
  Transmission Date: 20140711
  Serious: Yes (Other)
  Sender: FDA-Public Use
  Company Number: 2013US002449

PATIENT
  Age: 68 Year
  Sex: Female

DRUGS (4)
  1. ICLUSIG [Suspect]
     Indication: CHROMOSOME ANALYSIS ABNORMAL
     Route: 048
     Dates: start: 20130823
  2. ICLUSIG [Suspect]
     Indication: ACUTE LYMPHOCYTIC LEUKAEMIA
     Route: 048
     Dates: start: 20130823
  3. MULTIVITAMIN (VITAMINS NOS) [Concomitant]
  4. IRON (IRON) [Concomitant]

REACTIONS (5)
  - Weight decreased [None]
  - Fatigue [None]
  - Decreased appetite [None]
  - Constipation [None]
  - Diarrhoea [None]
